FAERS Safety Report 4311083-1 (Version None)
Quarter: 2004Q1

REPORT INFORMATION
  Report Type: 
  Country: None (occurrence: None)
  Receive Date: 20040302
  Receipt Date: 20040302
  Transmission Date: 20041129
  Serious: Yes (Life-Threatening, Hospitalization)
  Sender: FDA-Public Use
  Company Number: None

PATIENT
  Age: 70 Year
  Sex: Male
  Weight: 79.4 kg

DRUGS (8)
  1. COUMADIN [Suspect]
  2. DIGOXIN [Concomitant]
  3. FLUNISOLIDE [Concomitant]
  4. FOLIC ACID [Concomitant]
  5. FOSINOPRIL SODIUM [Concomitant]
  6. GLIPIZIDE [Concomitant]
  7. GLUCAGON [Concomitant]
  8. VITAMIN E [Concomitant]

REACTIONS (1)
  - INTERNATIONAL NORMALISED RATIO INCREASED [None]
